FAERS Safety Report 8497279 (Version 4)
Quarter: 2013Q2

REPORT INFORMATION
  Report Type: Spontaneous
  Country: US (occurrence: US)
  Receive Date: 20120406
  Receipt Date: 20130611
  Transmission Date: 20140414
  Serious: Yes (Hospitalization, Disabling, Other)
  Sender: FDA-Public Use
  Company Number: US-SANOFI-AVENTIS-2012SA021259

PATIENT
  Age: 83 Year
  Sex: Female
  Weight: 68.03 kg

DRUGS (12)
  1. APIDRA [Suspect]
     Indication: TYPE 1 DIABETES MELLITUS
     Dosage: SLIDING SCALE THREE TIMES A DAY
     Route: 058
     Dates: start: 2004, end: 2009
  2. APIDRA SOLOSTAR [Suspect]
     Indication: TYPE 1 DIABETES MELLITUS
     Dosage: SLIDING SCALE DOSE 1 TO 2 UNITS
     Route: 058
  3. APIDRA SOLOSTAR [Suspect]
     Indication: TYPE 1 DIABETES MELLITUS
     Dosage: SLIDING SCALE DOSE 1 TO 2 UNITS
     Route: 058
     Dates: start: 201010
  4. SOLOSTAR [Suspect]
     Indication: TYPE 1 DIABETES MELLITUS
     Dates: start: 2004
  5. LANTUS SOLOSTAR [Suspect]
     Indication: TYPE 1 DIABETES MELLITUS
     Route: 058
     Dates: start: 2004
  6. LANTUS SOLOSTAR [Suspect]
     Indication: TYPE 1 DIABETES MELLITUS
     Route: 058
     Dates: start: 20101015
  7. LANTUS SOLOSTAR [Suspect]
     Indication: TYPE 1 DIABETES MELLITUS
     Dosage: DOSE:42 UNIT(S)
     Route: 058
     Dates: start: 2011
  8. LANTUS SOLOSTAR [Suspect]
     Indication: TYPE 1 DIABETES MELLITUS
     Dosage: DOSE:28 UNIT(S)
     Route: 058
  9. LANTUS SOLOSTAR [Suspect]
     Indication: TYPE 1 DIABETES MELLITUS
     Dosage: DOSE:42 UNIT(S)
     Route: 058
     Dates: start: 2011
  10. SOLOSTAR [Suspect]
     Indication: TYPE 1 DIABETES MELLITUS
  11. SOLOSTAR [Suspect]
     Indication: TYPE 1 DIABETES MELLITUS
  12. LANTUS [Suspect]
     Indication: DIABETES MELLITUS
     Route: 058
     Dates: end: 2007

REACTIONS (11)
  - Arrhythmia [Unknown]
  - Fatigue [Unknown]
  - Bladder disorder [Unknown]
  - Sepsis [Unknown]
  - Staphylococcal infection [Unknown]
  - Spinal cord infection [Unknown]
  - Gait disturbance [Unknown]
  - General physical health deterioration [Unknown]
  - Blood glucose increased [Unknown]
  - Blood glucose decreased [Unknown]
  - Blood glucose increased [Unknown]
